FAERS Safety Report 6585253-6 (Version None)
Quarter: 2010Q1

REPORT INFORMATION
  Report Type: 
  Country: None (occurrence: None)
  Receive Date: 20100217
  Receipt Date: 20100209
  Transmission Date: 20100710
  Serious: Yes (Other)
  Sender: FDA-Public Use
  Company Number: US-BAXTER-2009BH016742

PATIENT
  Age: 40 Year
  Sex: Male
  Weight: 111 kg

DRUGS (15)
  1. HEPARIN SODIUM INJECTION [Suspect]
     Indication: HAEMODIALYSIS
     Route: 040
     Dates: start: 20071101, end: 20080229
  2. HEPARIN SODIUM INJECTION [Suspect]
     Route: 040
     Dates: start: 20080303, end: 20080310
  3. HEPARIN SODIUM INJECTION [Suspect]
     Route: 041
     Dates: start: 20080312, end: 20080401
  4. HEPARIN SODIUM INJECTION [Suspect]
     Route: 040
     Dates: start: 20080312, end: 20080401
  5. RENAGEL [Concomitant]
     Indication: DRUG USE FOR UNKNOWN INDICATION
     Route: 065
  6. ALLOPURINOL [Concomitant]
     Indication: DRUG USE FOR UNKNOWN INDICATION
     Route: 065
  7. VITAMIN B COMPLEX CAP [Concomitant]
     Indication: DRUG USE FOR UNKNOWN INDICATION
     Route: 065
  8. LORTAB [Concomitant]
     Indication: DRUG USE FOR UNKNOWN INDICATION
     Route: 065
  9. DIOVAN [Concomitant]
     Indication: DRUG USE FOR UNKNOWN INDICATION
     Route: 065
  10. LOPRESSOR [Concomitant]
     Indication: DRUG USE FOR UNKNOWN INDICATION
     Route: 065
  11. NIFEDIPINE [Concomitant]
     Indication: DRUG USE FOR UNKNOWN INDICATION
     Route: 065
  12. COLCHICINE [Concomitant]
     Indication: DRUG USE FOR UNKNOWN INDICATION
     Route: 065
  13. COLACE [Concomitant]
     Indication: DRUG USE FOR UNKNOWN INDICATION
     Route: 065
  14. HYDROXYZINE [Concomitant]
     Indication: DRUG USE FOR UNKNOWN INDICATION
     Route: 065
  15. SODIUM BICARBONATE [Concomitant]
     Indication: DRUG USE FOR UNKNOWN INDICATION
     Route: 065

REACTIONS (12)
  - ARRHYTHMIA [None]
  - BLOOD PRESSURE DECREASED [None]
  - BLOOD PRESSURE FLUCTUATION [None]
  - CARDIAC MURMUR [None]
  - CHEST DISCOMFORT [None]
  - DYSPNOEA [None]
  - HYPERHIDROSIS [None]
  - HYPOAESTHESIA [None]
  - MUSCLE SPASMS [None]
  - PARAESTHESIA [None]
  - PRURITUS [None]
  - RASH [None]
